FAERS Safety Report 5951224-3 (Version None)
Quarter: 2008Q4

REPORT INFORMATION
  Report Type: 
  Country: None (occurrence: None)
  Receive Date: 20081111
  Receipt Date: 20081111
  Transmission Date: 20090506
  Serious: Yes (Hospitalization)
  Sender: FDA-Public Use
  Company Number: None

PATIENT
  Sex: Female
  Weight: 60.05 kg

DRUGS (1)
  1. VONDELIS [Suspect]
     Indication: BREAST CANCER
     Dosage: PER UNSTATED CLINICAL TRIAL

REACTIONS (12)
  - ANAEMIA [None]
  - BREAST CANCER STAGE IV [None]
  - DEPRESSION [None]
  - DIARRHOEA [None]
  - FEBRILE NEUTROPENIA [None]
  - HYPOKALAEMIA [None]
  - HYPOVOLAEMIA [None]
  - METASTASIS [None]
  - NAUSEA [None]
  - THROMBOCYTOPENIA [None]
  - TRANSAMINASES INCREASED [None]
  - VOMITING [None]
